FAERS Safety Report 10984350 (Version 1)
Quarter: 2015Q2

REPORT INFORMATION
  Report Type: Spontaneous
  Country: US (occurrence: US)
  Receive Date: 20150403
  Receipt Date: 20150403
  Transmission Date: 20150821
  Serious: Yes (Hospitalization)
  Sender: FDA-Public Use
  Company Number: US-TEVA-488521USA

PATIENT
  Age: 26 Year
  Sex: Female
  Weight: 63.56 kg

DRUGS (4)
  1. VITAMIN C [Concomitant]
     Active Substance: ASCORBIC ACID
     Dates: start: 201405
  2. COPAXONE [Suspect]
     Active Substance: GLATIRAMER ACETATE
     Indication: MULTIPLE SCLEROSIS
     Dates: start: 20140611
  3. FOLIC ACID. [Concomitant]
     Active Substance: FOLIC ACID
     Dates: start: 201405
  4. ORGANIC MULTIVITAMIN [Concomitant]
     Dates: start: 201401

REACTIONS (2)
  - Normal newborn [Unknown]
  - Caesarean section [Recovered/Resolved]

NARRATIVE: CASE EVENT DATE: 20141128
